FAERS Safety Report 21321651 (Version 2)
Quarter: 2022Q4

REPORT INFORMATION
  Report Type: Report from Study
  Country: US (occurrence: None)
  Receive Date: 20220912
  Receipt Date: 20221013
  Transmission Date: 20230113
  Serious: Yes (Hospitalization)
  Sender: FDA-Public Use
  Company Number: US-Ultragenyx Pharmaceutical Inc.-US-UGNX-22-00630

PATIENT
  Sex: Male
  Weight: 11.612 kg

DRUGS (1)
  1. DOJOLVI [Suspect]
     Active Substance: TRIHEPTANOIN
     Indication: Carnitine palmitoyltransferase deficiency
     Dosage: 5.2 ML EVERY 4 HOURS, VIA BY MOUTH/G-TUBE
     Dates: start: 20201119

REACTIONS (1)
  - Diarrhoea [Recovered/Resolved]
